FAERS Safety Report 17746936 (Version 1)
Quarter: 2020Q2

REPORT INFORMATION
  Report Type: Spontaneous
  Country: IT (occurrence: IT)
  Receive Date: 20200505
  Receipt Date: 20200505
  Transmission Date: 20200714
  Serious: Yes (Other)
  Sender: FDA-Public Use
  Company Number: IT-MYLANLABS-2020M1043526

PATIENT
  Age: 1 Day
  Sex: Male

DRUGS (3)
  1. ATROPINE. [Concomitant]
     Active Substance: ATROPINE
     Indication: BRADYCARDIA
     Dosage: 0.03 MILLIGRAM, TOTAL
     Route: 042
     Dates: start: 20200326, end: 20200326
  2. DEXMEDETOMIDINE. [Suspect]
     Active Substance: DEXMEDETOMIDINE
     Indication: SEDATION
     Dosage: 3 MICROGRAM, TOTAL
     Route: 042
     Dates: start: 20200326, end: 20200326
  3. MIDAZOLAM. [Concomitant]
     Active Substance: MIDAZOLAM
     Indication: SEDATION
     Dosage: 0.3 MILLIGRAM, TOTAL
     Route: 065
     Dates: start: 20200326, end: 20200326

REACTIONS (6)
  - Hiccups [Recovered/Resolved]
  - Apnoea [Recovered/Resolved]
  - Respiratory disorder [Recovered/Resolved]
  - Off label use [Unknown]
  - Respiration abnormal [Recovered/Resolved]
  - Hypocapnia [Recovered/Resolved]

NARRATIVE: CASE EVENT DATE: 20200326
